FAERS Safety Report 9749860 (Version 1)
Quarter: 2013Q4

REPORT INFORMATION
  Report Type: Spontaneous
  Country: US (occurrence: US)
  Receive Date: 20131212
  Receipt Date: 20131212
  Transmission Date: 20140711
  Serious: Yes (Hospitalization)
  Sender: FDA-Public Use
  Company Number: US-PFIZER INC-2013354261

PATIENT
  Age: 63 Year
  Sex: Female
  Weight: 95.24 kg

DRUGS (8)
  1. LYRICA [Suspect]
     Indication: FIBROMYALGIA
     Dosage: 150 MG, 3X/DAY
     Route: 048
     Dates: start: 2008
  2. ACETAMINOPHEN W/OXYCODONE [Concomitant]
     Indication: PAIN
     Dosage: 40/1300MG, (10/325 MG, FOUR ORAL TABLETS IN A DAY)
     Route: 048
  3. ZANAFLEX [Concomitant]
     Indication: MUSCLE RELAXANT THERAPY
     Dosage: 40 MG, 1X/DAY
     Route: 048
  4. OMEPRAZOLE [Concomitant]
     Indication: GASTROOESOPHAGEAL REFLUX DISEASE
     Dosage: 20 MG, 1X/DAY
     Route: 048
  5. MECLIZINE [Concomitant]
     Indication: VERTIGO
     Dosage: 25 MG, 3X/DAY
     Route: 048
  6. COUMADINE [Concomitant]
     Indication: ANTICOAGULANT THERAPY
     Dosage: 2.5 MG, UNK
     Route: 048
  7. AMITRIPTYLINE [Concomitant]
     Indication: SLEEP DISORDER
     Dosage: UNK
  8. ADVAIR DISKUS [Concomitant]
     Dosage: 500/50, 2X/DAY

REACTIONS (1)
  - Arthropathy [Unknown]
